FAERS Safety Report 4303275-2 (Version None)
Quarter: 2004Q1

REPORT INFORMATION
  Report Type: 
  Country: None (occurrence: None)
  Receive Date: 20040223
  Receipt Date: 20040212
  Transmission Date: 20041129
  Serious: Yes (Hospitalization)
  Sender: FDA-Public Use
  Company Number: 2004199074FR

PATIENT
  Age: 79 Year
  Sex: Female

DRUGS (5)
  1. ALDACTONE [Suspect]
     Indication: ESSENTIAL HYPERTENSION
     Dosage: 75 MG, QD, ORAL
     Route: 048
     Dates: start: 20020130, end: 20020606
  2. ATARAX [Suspect]
     Indication: URTICARIA
     Dosage: 1 DF, QD, ORAL
     Route: 048
     Dates: start: 20020130
  3. CYNOMEL(LIOTHYRONINE SODIUM) [Suspect]
     Indication: HYPOTHYROIDISM
     Dosage: 0.75 DF, QD, ORAL
     Route: 048
  4. CLARITINE  (LORATADINE) [Suspect]
     Indication: URTICARIA
     Dosage: 1 DF, QD, ORAL
     Route: 048
     Dates: start: 20020130
  5. SINTROM [Suspect]
     Indication: ATRIAL FLUTTER
     Dosage: 1 MG, QD, ORAL
     Route: 048
     Dates: start: 20020130

REACTIONS (2)
  - ECZEMA [None]
  - TOXIC SKIN ERUPTION [None]
